FAERS Safety Report 7315277-2 (Version None)
Quarter: 2011Q1

REPORT INFORMATION
  Report Type: 
  Country: None (occurrence: None)
  Receive Date: 20110225
  Receipt Date: 20110215
  Transmission Date: 20110831
  Serious: Yes (Hospitalization)
  Sender: FDA-Public Use
  Company Number: ES-ELI_LILLY_AND_COMPANY-ES201102003902

PATIENT
  Sex: Female
  Weight: 69 kg

DRUGS (5)
  1. ENANTYUM [Concomitant]
     Indication: ANALGESIC THERAPY
     Dosage: 1 D/F, 2/D
     Route: 048
  2. FORTEO [Suspect]
     Indication: OSTEOPOROSIS
     Dosage: 20 UG, DAILY (1/D)
     Route: 058
     Dates: start: 20100920, end: 20110120
  3. FERRO-GRADUMET [Concomitant]
     Dosage: 1 D/F, DAILY (1/D)
     Route: 048
  4. PARIET [Concomitant]
     Indication: GASTRIC DISORDER
     Dosage: 1 D/F, DAILY (1/D)
     Route: 048
  5. NOLOTIL [Concomitant]
     Indication: ANALGESIC THERAPY
     Dosage: 1 D/F, EVERY 8 HRS
     Route: 048

REACTIONS (1)
  - SPINAL CORD COMPRESSION [None]
